FAERS Safety Report 16438522 (Version 6)
Quarter: 2020Q1

REPORT INFORMATION
  Report Type: Report from Study
  Country: BR (occurrence: BR)
  Receive Date: 20190617
  Receipt Date: 20200109
  Transmission Date: 20200409
  Serious: Yes (Other)
  Sender: FDA-Public Use
  Company Number: BR-UCBSA-2019024689

PATIENT
  Age: 78 Year
  Sex: Male
  Weight: 63 kg

DRUGS (6)
  1. CERTOLIZUMAB PEGOL RA [Suspect]
     Active Substance: CERTOLIZUMAB PEGOL
     Dosage: 400 MILLIGRAM, EV 30 DAYS
     Route: 058
     Dates: end: 20191209
  2. CERTOLIZUMAB PEGOL RA [Suspect]
     Active Substance: CERTOLIZUMAB PEGOL
     Dosage: 400 MILLIGRAM, EV 2 WEEKS(QOW)
     Route: 058
     Dates: end: 2019
  3. CERTOLIZUMAB PEGOL RA [Suspect]
     Active Substance: CERTOLIZUMAB PEGOL
     Dosage: 200 MILLIGRAM, EV 15 DAYS
     Route: 058
     Dates: start: 2019, end: 2019
  4. MAREVAN [Concomitant]
     Active Substance: WARFARIN SODIUM
     Indication: ANAEMIA
  5. HOLMES H [Concomitant]
     Indication: HYPERTENSION
     Dosage: 20.12 MILLIGRAM, ONCE DAILY (QD)
     Route: 048
     Dates: start: 2018
  6. CERTOLIZUMAB PEGOL RA [Suspect]
     Active Substance: CERTOLIZUMAB PEGOL
     Indication: RHEUMATOID ARTHRITIS
     Dosage: 400 MILLIGRAM, EV 2 WEEKS(QOW)
     Route: 058
     Dates: start: 201806

REACTIONS (5)
  - Drug ineffective [Unknown]
  - Pneumonia [Recovered/Resolved]
  - Diabetes mellitus [Not Recovered/Not Resolved]
  - Therapeutic response unexpected [Recovered/Resolved]
  - Intentional product misuse [Unknown]

NARRATIVE: CASE EVENT DATE: 2019
